FAERS Safety Report 16368132 (Version 1)
Quarter: 2019Q2

REPORT INFORMATION
  Report Type: Spontaneous
  Country: US (occurrence: US)
  Receive Date: 20190529
  Receipt Date: 20190529
  Transmission Date: 20190711
  Serious: Yes (Other)
  Sender: FDA-Public Use
  Company Number: US-009507513-1905USA010500

PATIENT
  Age: 68 Year
  Sex: Male

DRUGS (4)
  1. KEYTRUDA [Suspect]
     Active Substance: PEMBROLIZUMAB
     Dosage: UNKNOWN DOSE EVERY 3 WEEKS; ROUTE OF ADMINISTRATION: INTRAVENOUS VIA PORT ACCESS
     Route: 042
     Dates: start: 2019
  2. KEYTRUDA [Suspect]
     Active Substance: PEMBROLIZUMAB
     Indication: LUNG CARCINOMA CELL TYPE UNSPECIFIED STAGE IV
     Dosage: UNKNOWN DOSE EVERY 3 WEEKS; ROUTE OF ADMINISTRATION: INTRAVENOUS VIA PORT ACCESS
     Route: 042
     Dates: start: 201811, end: 2019
  3. CARBOPLATIN. [Suspect]
     Active Substance: CARBOPLATIN
  4. ALIMTA [Suspect]
     Active Substance: PEMETREXED DISODIUM

REACTIONS (5)
  - Red blood cell count decreased [Recovered/Resolved]
  - Clavicle fracture [Unknown]
  - Coagulopathy [Unknown]
  - Lung infection [Unknown]
  - Cough [Unknown]

NARRATIVE: CASE EVENT DATE: 2019
